FAERS Safety Report 10203488 (Version 1)
Quarter: 2014Q2

REPORT INFORMATION
  Report Type: Spontaneous
  Country: US (occurrence: None)
  Receive Date: 20140523
  Receipt Date: 20140523
  Transmission Date: 20141212
  Serious: Yes (Life-Threatening, Hospitalization)
  Sender: FDA-Public Use
  Company Number: DAV-AE-AMP-14-01

PATIENT
  Age: 57 Year
  Sex: Male
  Weight: 87.8 kg

DRUGS (2)
  1. AMPICILLIN [Suspect]
  2. GENTAMYCIN [Concomitant]

REACTIONS (3)
  - Renal failure acute [None]
  - Tubulointerstitial nephritis [None]
  - Hypersensitivity [None]
